FAERS Safety Report 24214312 (Version 1)
Quarter: 2024Q3

REPORT INFORMATION
  Report Type: Spontaneous
  Country: JP (occurrence: JP)
  Receive Date: 20240815
  Receipt Date: 20240815
  Transmission Date: 20241016
  Serious: Yes (Disabling, Other)
  Sender: AMERICAN REGENT
  Company Number: JP-AMERICAN REGENT INC-2024002866

PATIENT
  Age: 77 Year
  Sex: Female

DRUGS (8)
  1. FERINJECT [Suspect]
     Active Substance: FERRIC CARBOXYMALTOSE
     Indication: Iron deficiency anaemia
     Dosage: 500 MILLIGRAM
     Dates: start: 20240508, end: 20240508
  2. FERINJECT [Suspect]
     Active Substance: FERRIC CARBOXYMALTOSE
     Dosage: 500 MILLIGRAM
     Dates: start: 20240516, end: 20240516
  3. FERINJECT [Suspect]
     Active Substance: FERRIC CARBOXYMALTOSE
     Dosage: 500 MILLIGRAM
     Dates: start: 20240523, end: 20240523
  4. FERINJECT [Suspect]
     Active Substance: FERRIC CARBOXYMALTOSE
     Dosage: 500 MILLIGRAM
     Dates: start: 20240531, end: 20240531
  5. FERINJECT [Suspect]
     Active Substance: FERRIC CARBOXYMALTOSE
     Dosage: 500 MILLIGRAM
     Dates: start: 20240607, end: 20240607
  6. FERINJECT [Suspect]
     Active Substance: FERRIC CARBOXYMALTOSE
     Dosage: 500 MILLIGRAM
     Dates: start: 20240613, end: 20240613
  7. FERINJECT [Suspect]
     Active Substance: FERRIC CARBOXYMALTOSE
     Dosage: 500 MILLIGRAM
     Dates: start: 20240621, end: 20240621
  8. ZOLPIDEM TARTRATE [Concomitant]
     Active Substance: ZOLPIDEM TARTRATE
     Indication: Product used for unknown indication
     Dosage: CONTINUED (10 MILLIGRAM, 1 IN 1 D)
     Route: 048

REACTIONS (3)
  - Serum ferritin increased [Unknown]
  - Hypophosphataemia [Unknown]
  - Overdose [Unknown]

NARRATIVE: CASE EVENT DATE: 20240621
